FAERS Safety Report 12309376 (Version 1)
Quarter: 2016Q2

REPORT INFORMATION
  Report Type: Report from Study
  Country: DE (occurrence: DE)
  Receive Date: 20160427
  Receipt Date: 20160427
  Transmission Date: 20160815
  Serious: Yes (Hospitalization)
  Sender: FDA-Public Use
  Company Number: PHHO2010DE022207

PATIENT
  Age: 61 Year
  Sex: Male
  Weight: 82 kg

DRUGS (1)
  1. PAZOPANIB [Suspect]
     Active Substance: PAZOPANIB
     Indication: RENAL CELL CARCINOMA
     Dosage: 800 MG, QD
     Route: 048
     Dates: start: 20100917, end: 20101129

REACTIONS (1)
  - Pain in extremity [Recovered/Resolved with Sequelae]

NARRATIVE: CASE EVENT DATE: 20101128
